FAERS Safety Report 8953232 (Version 1)
Quarter: 2012Q4

REPORT INFORMATION
  Report Type: 
  Country: US (occurrence: US)
  Receive Date: 20121206
  Receipt Date: 20121206
  Transmission Date: 20130627
  Serious: Yes (Other)
  Sender: FDA-Public Use
  Company Number: US-AMGEN-USASP2012076752

PATIENT
  Age: 67 Year
  Sex: Female

DRUGS (1)
  1. EPOGEN [Suspect]
     Indication: RENAL FAILURE CHRONIC
     Dosage: 4,500-6,500 Units 3 times/wk
     Dates: start: 20120531

REACTIONS (2)
  - Haemoglobin decreased [Not Recovered/Not Resolved]
  - Serum ferritin decreased [Recovered/Resolved]
